FAERS Safety Report 20077478 (Version 1)
Quarter: 2021Q4

REPORT INFORMATION
  Report Type: Spontaneous
  Country: FR (occurrence: FR)
  Receive Date: 20211116
  Receipt Date: 20211116
  Transmission Date: 20220303
  Serious: Yes (Other)
  Sender: FDA-Public Use
  Company Number: FR-Merck Healthcare KGaA-9260006

PATIENT
  Age: 82 Year
  Sex: Female

DRUGS (4)
  1. ATENOLOL [Suspect]
     Active Substance: ATENOLOL
     Indication: Myocardial infarction
     Dosage: 0.5 DOSAGE FORM, QD
     Route: 065
     Dates: start: 202108
  2. ATENOLOL [Suspect]
     Active Substance: ATENOLOL
     Dosage: 0.5 DOSAGE FORM, QD
     Route: 048
  3. BISOPROLOL [Suspect]
     Active Substance: BISOPROLOL
     Indication: Myocardial infarction
     Dosage: 1 DOSAGE FORM, QD
     Route: 065
     Dates: start: 20210815, end: 20210815
  4. BROMAZEPAM [Concomitant]
     Active Substance: BROMAZEPAM
     Indication: Product used for unknown indication
     Dosage: UNK

REACTIONS (8)
  - Lupus-like syndrome [Unknown]
  - Angina pectoris [Not Recovered/Not Resolved]
  - Visual impairment [Not Recovered/Not Resolved]
  - Blood pressure increased [Not Recovered/Not Resolved]
  - Dyspnoea [Not Recovered/Not Resolved]
  - Hypersensitivity [Not Recovered/Not Resolved]
  - Alopecia [Not Recovered/Not Resolved]
  - Condition aggravated [Not Recovered/Not Resolved]
